FAERS Safety Report 12991847 (Version 2)
Quarter: 2019Q2

REPORT INFORMATION
  Report Type: Spontaneous
  Country: US (occurrence: US)
  Receive Date: 20161201
  Receipt Date: 20190627
  Transmission Date: 20190711
  Serious: Yes (Death, Hospitalization)
  Sender: FDA-Public Use
  Company Number: US-ACTELION-A-NJ2016-146078

PATIENT
  Age: 8 Year
  Sex: Male

DRUGS (4)
  1. REMODULIN [Concomitant]
     Active Substance: TREPROSTINIL
  2. TADALAFIL. [Concomitant]
     Active Substance: TADALAFIL
  3. TRACLEER [Suspect]
     Active Substance: BOSENTAN
     Indication: PULMONARY HYPERTENSION
     Dosage: 32 MG, BID
     Route: 048
     Dates: start: 20170517, end: 20190613
  4. TRACLEER [Suspect]
     Active Substance: BOSENTAN
     Dosage: 31.25 MG, BID
     Route: 048
     Dates: start: 20160504

REACTIONS (2)
  - Death [Fatal]
  - Balloon atrial septostomy [Unknown]

NARRATIVE: CASE EVENT DATE: 20190613
